FAERS Safety Report 8522737 (Version 4)
Quarter: 2013Q2

REPORT INFORMATION
  Report Type: Spontaneous
  Country: TW (occurrence: TW)
  Receive Date: 20120419
  Receipt Date: 20130507
  Transmission Date: 20140414
  Serious: Yes (Hospitalization)
  Sender: FDA-Public Use
  Company Number: TW-ABBOTT-12P-153-0925785-00

PATIENT
  Age: 86 Year
  Sex: Female

DRUGS (3)
  1. HUMIRA 40 MG/ 0.8 ML PRE-FILLED SYRINGE [Suspect]
     Indication: RHEUMATOID ARTHRITIS
     Route: 058
     Dates: start: 20111006, end: 20120216
  2. MIACALCIC [Concomitant]
     Indication: PRODUCT USED FOR UNKNOWN INDICATION
     Route: 055
  3. ULTRACET [Concomitant]
     Indication: PRODUCT USED FOR UNKNOWN INDICATION

REACTIONS (51)
  - Pyrexia [Not Recovered/Not Resolved]
  - Chills [Not Recovered/Not Resolved]
  - Pulmonary tuberculosis [Not Recovered/Not Resolved]
  - Chest discomfort [Unknown]
  - Dyspnoea [Unknown]
  - Nausea [Unknown]
  - Vomiting [Unknown]
  - Dizziness [Unknown]
  - Dysphonia [Unknown]
  - Throat irritation [Unknown]
  - Sensation of foreign body [Unknown]
  - Cough [Unknown]
  - Abdominal distension [Unknown]
  - Constipation [Unknown]
  - Dysuria [Unknown]
  - Urinary incontinence [Unknown]
  - Cardiac murmur [Unknown]
  - Hepatic calcification [Unknown]
  - Renal cyst [Unknown]
  - Aortic calcification [Unknown]
  - Gastritis [Unknown]
  - Abscess [Unknown]
  - Vocal cord paralysis [Unknown]
  - Inflammation [Unknown]
  - Device related infection [Unknown]
  - Pruritus allergic [Unknown]
  - Back pain [Unknown]
  - Hypoaesthesia [Unknown]
  - Vitiligo [Unknown]
  - Psoriasis [Unknown]
  - Headache [Unknown]
  - Large intestine polyp [Unknown]
  - Joint range of motion decreased [Unknown]
  - Spondylolisthesis [Unknown]
  - Intestinal polyp [Unknown]
  - Bone density decreased [Unknown]
  - Joint swelling [Unknown]
  - Arthralgia [Unknown]
  - Unevaluable event [Unknown]
  - Monarthritis [Unknown]
  - Arthritis [Unknown]
  - Bacterial test positive [Unknown]
  - Pseudomonas infection [Unknown]
  - Gouty arthritis [Unknown]
  - Aortic aneurysm [Unknown]
  - Aortic thrombosis [Unknown]
  - Inflammation [Unknown]
  - Goitre [Unknown]
  - Bronchiectasis [Unknown]
  - Stent-graft endoleak [Unknown]
  - Mycobacterial infection [Unknown]
